FAERS Safety Report 5278917-8 (Version None)
Quarter: 2007Q1

REPORT INFORMATION
  Report Type: 
  Country: None (occurrence: None)
  Receive Date: 20070327
  Receipt Date: 20070327
  Transmission Date: 20070707
  Serious: Yes (Other)
  Sender: FDA-Public Use
  Company Number: None

PATIENT
  Age: 62 Year
  Sex: Female
  Weight: 65.318 kg

DRUGS (1)
  1. SIMVASTATIN [Suspect]
     Indication: MIXED HYPERLIPIDAEMIA
     Dosage: 20 MG QD PO
     Route: 048
     Dates: start: 20070221, end: 20070226

REACTIONS (3)
  - ABDOMINAL PAIN [None]
  - MICTURITION URGENCY [None]
  - POLLAKIURIA [None]
